FAERS Safety Report 13257727 (Version 4)
Quarter: 2017Q1

REPORT INFORMATION
  Report Type: Report from Study
  Country: US (occurrence: US)
  Receive Date: 20170221
  Receipt Date: 20170324
  Transmission Date: 20170428
  Serious: Yes (Hospitalization, Other)
  Sender: FDA-Public Use
  Company Number: US-PFIZER INC-2017072751

PATIENT
  Age: 59 Year
  Sex: Male

DRUGS (4)
  1. SUTENT [Suspect]
     Active Substance: SUNITINIB MALATE
     Dosage: 50 MG, CYCLIC; (DAILY FOR DAY 1- DAY 28, FOLLOWED BY 14 DAYS OFF)
     Route: 048
     Dates: start: 20170206, end: 20170207
  2. SUTENT [Suspect]
     Active Substance: SUNITINIB MALATE
     Dosage: 50 MG, CYCLIC; (DAILY FOR DAY 1- DAY 28, FOLLOWED BY 14 DAYS OFF, TO COMPLETE 42 DAYS OF ONE CYCLE)
     Route: 048
     Dates: start: 20170309
  3. SUTENT [Suspect]
     Active Substance: SUNITINIB MALATE
     Indication: RENAL CELL CARCINOMA
     Dosage: 50 MG, CYCLIC (DAILY FOR DAY1-DAY28)
     Route: 048
     Dates: start: 20170206, end: 20170207
  4. SUTENT [Suspect]
     Active Substance: SUNITINIB MALATE
     Dosage: 50 MG, CYCLIC; (DAILY FOR DAY 1- DAY 28, FOLLOWED BY 14 DAYS OFF, TO COMPLETE 42 DAYS OF ONE CYCLE)
     Route: 048
     Dates: start: 20170206, end: 20170207

REACTIONS (7)
  - Thrombocytopenia [Unknown]
  - Hypercalcaemia [Unknown]
  - Haemorrhoids [Unknown]
  - Hypokalaemia [Unknown]
  - Nausea [Unknown]
  - Hypomagnesaemia [Unknown]
  - Vomiting [Unknown]

NARRATIVE: CASE EVENT DATE: 20170206
